FAERS Safety Report 8375971-1 (Version None)
Quarter: 2012Q2

REPORT INFORMATION
  Report Type: 
  Country: None (occurrence: None)
  Receive Date: 20120522
  Receipt Date: 20120517
  Transmission Date: 20120825
  Serious: Yes (Hospitalization)
  Sender: FDA-Public Use
  Company Number: US-AMGEN-USASP2012031168

PATIENT
  Age: 46 Year
  Sex: Female

DRUGS (2)
  1. ENBREL [Suspect]
     Indication: PSORIATIC ARTHROPATHY
     Dosage: 50 MG, QWK
     Dates: start: 20040215, end: 20120409
  2. ENBREL [Suspect]
     Indication: PSORIASIS

REACTIONS (9)
  - WRIST DEFORMITY [None]
  - MUSCULOSKELETAL STIFFNESS [None]
  - PAIN IN EXTREMITY [None]
  - HAND DEFORMITY [None]
  - PSORIASIS [None]
  - ARTHRALGIA [None]
  - INFLAMMATION [None]
  - OEDEMA PERIPHERAL [None]
  - MUSCULAR WEAKNESS [None]
